FAERS Safety Report 7553135 (Version 2)
Quarter: 2012Q4

REPORT INFORMATION
  Report Type: 
  Country: CA (occurrence: CA)
  Receive Date: 20100825
  Receipt Date: 20121106
  Transmission Date: 20130627
  Serious: Yes (Hospitalization, Other)
  Sender: FDA-Public Use
  Company Number: PHHY2010CA19596

PATIENT
  Sex: Male

DRUGS (5)
  1. SANDOSTATIN LAR [Suspect]
     Indication: ACROMEGALY
     Dosage: 30 mg, Every 4 weeks
     Route: 030
     Dates: start: 20070807
  2. DOSTINEX [Concomitant]
     Dosage: 0.5 mg, 5x per week
  3. LIPITOR [Concomitant]
     Dosage: 40 mg, QD
  4. DIOVAN [Concomitant]
     Dosage: 80 mg, QD
  5. METFORMIN [Concomitant]
     Dosage: 500 mg, TID

REACTIONS (6)
  - Anaemia [Unknown]
  - Large intestine polyp [Recovering/Resolving]
  - Haemorrhage [Unknown]
  - Malaise [Unknown]
  - Headache [Unknown]
  - Constipation [Unknown]
